FAERS Safety Report 17957876 (Version 2)
Quarter: 2020Q3

REPORT INFORMATION
  Report Type: Report from Study
  Country: US (occurrence: US)
  Receive Date: 20200629
  Receipt Date: 20200911
  Transmission Date: 20201103
  Serious: No
  Sender: FDA-Public Use
  Company Number: US-SA-2020SA166940

PATIENT

DRUGS (1)
  1. TERIFLUNOMIDE. [Suspect]
     Active Substance: TERIFLUNOMIDE
     Indication: MULTIPLE SCLEROSIS
     Dosage: 14 MG, QD
     Route: 048
     Dates: start: 20191116

REACTIONS (8)
  - Scab [Not Recovered/Not Resolved]
  - Skin discolouration [Unknown]
  - Skin infection [Not Recovered/Not Resolved]
  - Central nervous system lesion [Unknown]
  - Memory impairment [Unknown]
  - Hair disorder [Unknown]
  - Alopecia [Recovered/Resolved]
  - Pruritus [Not Recovered/Not Resolved]

NARRATIVE: CASE EVENT DATE: 201911
